FAERS Safety Report 6368956-8 (Version None)
Quarter: 2009Q3

REPORT INFORMATION
  Report Type: 
  Country: None (occurrence: None)
  Receive Date: 20090922
  Receipt Date: 20090921
  Transmission Date: 20100115
  Serious: Yes (Hospitalization, Other)
  Sender: FDA-Public Use
  Company Number: DE-ROXANE LABORATORIES, INC.-2009-RO-00960RO

PATIENT
  Age: 32 Year
  Sex: Female

DRUGS (8)
  1. CITALOPRAM HYDROBROMIDE [Suspect]
     Indication: MAJOR DEPRESSION
  2. CITALOPRAM HYDROBROMIDE [Suspect]
     Dosage: 40 MG
  3. MIRTAZAPINE [Suspect]
     Indication: MAJOR DEPRESSION
     Dosage: 45 MG
  4. MIRTAZAPINE [Suspect]
  5. VITAMIN B-12 [Suspect]
  6. PLATELETS [Concomitant]
     Indication: PLATELET DISORDER
  7. PREDNISONE [Concomitant]
     Indication: THROMBOCYTOPENIA
     Dosage: 100 MG
  8. VENLAFAXINE [Concomitant]
     Indication: THROMBOCYTOPENIA

REACTIONS (4)
  - DRUG EFFECT DECREASED [None]
  - HAEMORRHAGE [None]
  - THROMBOCYTOPENIA [None]
  - VAGINAL HAEMORRHAGE [None]
